FAERS Safety Report 7103037-7 (Version None)
Quarter: 2010Q4

REPORT INFORMATION
  Report Type: 
  Country: None (occurrence: None)
  Receive Date: 20101115
  Receipt Date: 20101110
  Transmission Date: 20110411
  Serious: Yes (Other)
  Sender: FDA-Public Use
  Company Number: IN-ROXANE LABORATORIES, INC.-2010-RO-01482RO

PATIENT
  Age: 26 Year
  Sex: Male
  Weight: 50 kg

DRUGS (2)
  1. MIDAZOLAM [Suspect]
     Indication: DRUG TOXICITY
     Dosage: 3 MG
     Route: 042
  2. LIDOCAINE [Suspect]
     Indication: NASAL CAVITY PACKING
     Dosage: 5 ML
     Route: 045

REACTIONS (3)
  - DRUG TOXICITY [None]
  - GRAND MAL CONVULSION [None]
  - METABOLIC ACIDOSIS [None]
